FAERS Safety Report 7171165-6 (Version None)
Quarter: 2010Q4

REPORT INFORMATION
  Report Type: 
  Country: None (occurrence: None)
  Receive Date: 20101123
  Receipt Date: 20100928
  Transmission Date: 20110411
  Serious: No
  Sender: FDA-Public Use
  Company Number: 019557

PATIENT
  Sex: Female
  Weight: 65 kg

DRUGS (1)
  1. CIMZIA [Suspect]
     Indication: CROHN'S DISEASE
     Dosage: 400 MG 1X/4 WEEKS; SUBCUTANEOUS
     Route: 058
     Dates: start: 20100101

REACTIONS (2)
  - INCORRECT PRODUCT STORAGE [None]
  - INJECTION SITE HAEMATOMA [None]
